FAERS Safety Report 7577713-6 (Version None)
Quarter: 2011Q2

REPORT INFORMATION
  Report Type: 
  Country: None (occurrence: None)
  Receive Date: 20110628
  Receipt Date: 20110623
  Transmission Date: 20111010
  Serious: Yes (Other)
  Sender: FDA-Public Use
  Company Number: JP-PFIZER INC-2011116852

PATIENT
  Age: 40 Year
  Sex: Male
  Weight: 70 kg

DRUGS (10)
  1. VARENICLINE TARTRATE [Suspect]
     Dosage: 1 MG, 2X/DAY
     Route: 048
     Dates: start: 20110420, end: 20110519
  2. TANATRIL [Concomitant]
     Dosage: 10 MG, 1X/DAY
     Dates: start: 20110419
  3. LOSARTAN POTASSIUM [Concomitant]
     Dosage: 50 MG, 1X/DAY
     Dates: end: 20110418
  4. VARENICLINE TARTRATE [Suspect]
     Dosage: 0.5 MG, 2X/DAY
     Route: 048
     Dates: start: 20110416, end: 20110419
  5. ALDACTONE [Concomitant]
     Dosage: 25 MG DAILY
  6. ARELIX ^CASSELLA^ [Concomitant]
     Dosage: 6 MG, 1X/DAY
     Dates: end: 20110418
  7. SLOW-K [Concomitant]
     Dosage: 600 MG, 1X/DAY
     Dates: end: 20110418
  8. LUPRAC [Concomitant]
     Dosage: 8 MG, 1X/DAY
     Dates: start: 20110419
  9. VARENICLINE TARTRATE [Suspect]
     Dosage: 0.5 MG, 1X/DAY
     Route: 048
     Dates: start: 20110413, end: 20110415
  10. NATRIX [Concomitant]
     Dosage: 1 MG, 1X/DAY
     Dates: start: 20110517

REACTIONS (3)
  - BLOOD CREATINE PHOSPHOKINASE INCREASED [None]
  - ARTHRALGIA [None]
  - MYALGIA [None]
